FAERS Safety Report 19638878 (Version 4)
Quarter: 2022Q2

REPORT INFORMATION
  Report Type: Spontaneous
  Country: US (occurrence: US)
  Receive Date: 20210729
  Receipt Date: 20220620
  Transmission Date: 20220721
  Serious: No
  Sender: FDA-Public Use
  Company Number: US-SA-SAC20210727000425

PATIENT
  Age: 64 Year
  Sex: Female

DRUGS (2)
  1. KEVZARA [Suspect]
     Active Substance: SARILUMAB
     Indication: Rheumatoid arthritis
     Dosage: 200 MG, QOW
     Route: 058
     Dates: start: 202105, end: 2021
  2. KEVZARA [Suspect]
     Active Substance: SARILUMAB
     Dosage: 200 MG, 200MG/1.14
     Route: 058
     Dates: start: 202110

REACTIONS (4)
  - Influenza [Unknown]
  - Illness [Unknown]
  - Product dose omission issue [Unknown]
  - Urinary tract infection [Unknown]

NARRATIVE: CASE EVENT DATE: 20210101
